FAERS Safety Report 24019043 (Version 1)
Quarter: 2024Q2

REPORT INFORMATION
  Report Type: Spontaneous
  Country: US (occurrence: None)
  Receive Date: 20240627
  Receipt Date: 20240627
  Transmission Date: 20240716
  Serious: Yes (Hospitalization, Other)
  Sender: FDA-Public Use
  Company Number: US-Unichem Pharmaceuticals (USA) Inc-UCM202406-000788

PATIENT
  Age: 43 Year
  Sex: Female

DRUGS (1)
  1. METFORMIN HYDROCHLORIDE [Suspect]
     Active Substance: METFORMIN HYDROCHLORIDE
     Indication: Product used for unknown indication
     Dosage: 360 TABLETS

REACTIONS (5)
  - Renal impairment [Unknown]
  - Hypoglycaemia [Unknown]
  - Lactic acidosis [Unknown]
  - Toxicity to various agents [Unknown]
  - Intentional overdose [Unknown]
